FAERS Safety Report 6414887-4 (Version None)
Quarter: 2009Q4

REPORT INFORMATION
  Report Type: 
  Country: None (occurrence: None)
  Receive Date: 20091026
  Receipt Date: 20090619
  Transmission Date: 20100525
  Serious: No
  Sender: FDA-Public Use
  Company Number: US-ABBOTT-09P-163-0581261-00

PATIENT
  Sex: Female

DRUGS (4)
  1. LUPRON DEPOT [Suspect]
     Indication: PROPHYLAXIS
     Dates: start: 20090601
  2. LUPRON DEPOT [Suspect]
     Indication: ENDOMETRIOSIS
  3. AYGESTIN [Concomitant]
     Indication: PROPHYLAXIS
     Dates: start: 20090601
  4. AYGESTIN [Concomitant]
     Indication: ENDOMETRIOSIS

REACTIONS (3)
  - ANXIETY [None]
  - HYPERHIDROSIS [None]
  - PALPITATIONS [None]
